FAERS Safety Report 5404627-X (Version None)
Quarter: 2007Q3

REPORT INFORMATION
  Report Type: 
  Country: None (occurrence: None)
  Receive Date: 20070713
  Receipt Date: 20070319
  Transmission Date: 20080115
  Serious: Yes (Other)
  Sender: FDA-Public Use
  Company Number: US-JNJFOC-20060405805

PATIENT
  Age: 34 Year
  Sex: Female
  Weight: 54.4316 kg

DRUGS (3)
  1. ORTHO EVRA [Suspect]
     Indication: DRUG USE FOR UNKNOWN INDICATION
     Dosage: TRANSDERMAL
     Route: 062
     Dates: start: 20020601, end: 20050701
  2. IMMUNO SUPPRESSANT DRUG (IMMUNOSUPPRESSIVE AGENTS) [Concomitant]
  3. INSULIN (INSULIN) [Concomitant]

REACTIONS (2)
  - ARTERIAL THROMBOSIS [None]
  - DEEP VEIN THROMBOSIS [None]
